FAERS Safety Report 10628419 (Version 1)
Quarter: 2014Q4

REPORT INFORMATION
  Report Type: Spontaneous
  Country: US (occurrence: US)
  Receive Date: 20141205
  Receipt Date: 20141205
  Transmission Date: 20150529
  Serious: No
  Sender: FDA-Public Use
  Company Number: US-BRISTOL-MYERS SQUIBB COMPANY-21437439

PATIENT
  Age: 13 Year
  Sex: Male
  Weight: 61.68 kg

DRUGS (6)
  1. ABILIFY [Suspect]
     Active Substance: ARIPIPRAZOLE
     Indication: AUTISM
     Dosage: 1 MG BY SPLITTING A 2MG TABLET IN HALF
     Dates: start: 20140818
  2. ABILIFY [Suspect]
     Active Substance: ARIPIPRAZOLE
     Indication: ABNORMAL BEHAVIOUR
     Dosage: 1 MG BY SPLITTING A 2MG TABLET IN HALF
     Dates: start: 20140818
  3. ABILIFY [Suspect]
     Active Substance: ARIPIPRAZOLE
     Indication: FRUSTRATION
     Dosage: 1 MG BY SPLITTING A 2MG TABLET IN HALF
     Dates: start: 20140818
  4. ABILIFY [Suspect]
     Active Substance: ARIPIPRAZOLE
     Indication: ANGER
     Dosage: 1 MG BY SPLITTING A 2MG TABLET IN HALF
     Dates: start: 20140818
  5. TYLENOL [Concomitant]
     Active Substance: ACETAMINOPHEN
  6. TENEX [Concomitant]
     Active Substance: GUANFACINE HYDROCHLORIDE

REACTIONS (11)
  - Wrong technique in drug usage process [Unknown]
  - Fatigue [Unknown]
  - Frustration [Unknown]
  - Weight increased [Unknown]
  - Lethargy [Unknown]
  - Somnolence [Unknown]
  - Off label use [Unknown]
  - Headache [Unknown]
  - Anger [Unknown]
  - Blood pressure decreased [Unknown]
  - Nausea [Unknown]
